FAERS Safety Report 9725398 (Version 1)
Quarter: 2013Q4

REPORT INFORMATION
  Report Type: Spontaneous
  Country: US (occurrence: None)
  Receive Date: 20131129
  Receipt Date: 20131129
  Transmission Date: 20140711
  Serious: Yes (Hospitalization)
  Sender: FDA-Public Use
  Company Number: IMP_06888_2013

PATIENT
  Age: 1 Month
  Sex: Female

DRUGS (1)
  1. DOXYCYCLINE [Suspect]
     Indication: CYSTIC LYMPHANGIOMA
     Dosage: 3 TREATMENTS OF 10MG/ML, TOTAL OF 80MG DURING EACH TREATMENT VIA PIGTAIL CATHETER W/ 2 HR DWELL TIME

REACTIONS (2)
  - Horner^s syndrome [None]
  - Aspiration [None]
